FAERS Safety Report 24717763 (Version 1)
Quarter: 2024Q4

REPORT INFORMATION
  Report Type: Spontaneous
  Country: US (occurrence: US)
  Receive Date: 20241210
  Receipt Date: 20241210
  Transmission Date: 20250115
  Serious: No
  Sender: JOHNSON AND JOHNSON
  Company Number: US-JNJFOC-20241220485

PATIENT

DRUGS (4)
  1. RILPIVIRINE [Suspect]
     Active Substance: RILPIVIRINE
     Indication: Product used for unknown indication
     Dosage: CABENUVA CAB 600MG+RPV 900MG 2X3ML_US
  2. RILPIVIRINE [Suspect]
     Active Substance: RILPIVIRINE
     Dosage: CABENUVA CAB 600MG+RPV 900MG 2X3ML_US
     Route: 030
  3. CABOTEGRAVIR SODIUM [Suspect]
     Active Substance: CABOTEGRAVIR SODIUM
     Indication: Product used for unknown indication
     Dosage: CABENUVA CAB 600MG+RPV 900MG 2X3ML_US
     Route: 065
  4. CABOTEGRAVIR SODIUM [Suspect]
     Active Substance: CABOTEGRAVIR SODIUM
     Dosage: CABENUVA CAB 600MG+RPV 900MG 2X3ML_US
     Route: 065

REACTIONS (5)
  - Product dose omission issue [Unknown]
  - Liquid product physical issue [Unknown]
  - Syringe issue [Unknown]
  - Product leakage [Unknown]
  - Wrong technique in product usage process [Unknown]
